FAERS Safety Report 5110259-3 (Version None)
Quarter: 2006Q3

REPORT INFORMATION
  Report Type: 
  Country: None (occurrence: None)
  Receive Date: 20060921
  Receipt Date: 20060810
  Transmission Date: 20061208
  Serious: Yes (Life-Threatening)
  Sender: FDA-Public Use
  Company Number: 2006JP002625

PATIENT
  Age: 71 Year
  Sex: Male
  Weight: 60.4 kg

DRUGS (6)
  1. CEFAMEZIN [Suspect]
     Indication: DRUG USE FOR UNKNOWN INDICATION
     Dosage: 1G PER DAY
     Route: 042
  2. TRANQUILIZER [Concomitant]
  3. NIFEDIPINE [Concomitant]
     Dates: start: 20060624
  4. CONAN [Concomitant]
     Dates: start: 20060106
  5. PURSENNID [Concomitant]
     Dates: start: 20060106
  6. DAI-KENCHU-TO [Concomitant]
     Dates: start: 20060715

REACTIONS (5)
  - ERYTHEMA [None]
  - PYREXIA [None]
  - STATUS EPILEPTICUS [None]
  - TONIC CONVULSION [None]
  - VOMITING [None]
